FAERS Safety Report 4385106-8 (Version None)
Quarter: 2004Q2

REPORT INFORMATION
  Report Type: 
  Country: None (occurrence: None)
  Receive Date: 20040624
  Receipt Date: 20040624
  Transmission Date: 20050107
  Serious: Yes (Hospitalization)
  Sender: FDA-Public Use
  Company Number: None

PATIENT
  Sex: Male

DRUGS (9)
  1. ARANESP [Suspect]
     Indication: ANAEMIA OF CHRONIC DISEASE
     Dosage: 200 MCG Q2 WEEKS SUBCUTANEOUS
     Route: 058
     Dates: start: 20040226, end: 20040310
  2. ALBUTEROL [Concomitant]
  3. DIGOXIN [Concomitant]
  4. FLUNISOLIDE INHALER [Concomitant]
  5. FUROSEMIDE [Concomitant]
  6. LEVOTHYROXINE SODIUM [Concomitant]
  7. LISINOPRIL [Concomitant]
  8. RABEPRAZOLE SODIUM [Concomitant]
  9. SIMVASTATIN [Concomitant]

REACTIONS (1)
  - CARDIAC FAILURE CONGESTIVE [None]
